FAERS Safety Report 18733441 (Version 2)
Quarter: 2021Q1

REPORT INFORMATION
  Report Type: Report from Study
  Country: None (occurrence: US)
  Receive Date: 20210112
  Receipt Date: 20210212
  Transmission Date: 20210419
  Serious: Yes (Hospitalization, Other)
  Sender: FDA-Public Use
  Company Number: US-ABBVIE-20K-163-3590643-00

PATIENT
  Age: 34 Year
  Sex: Female
  Weight: 68.1 kg

DRUGS (2)
  1. HUMIRA [Suspect]
     Active Substance: ADALIMUMAB
     Indication: COLITIS ULCERATIVE
     Dosage: CITRATE FREE
     Route: 058
     Dates: start: 20200903
  2. PREDNISONE. [Suspect]
     Active Substance: PREDNISONE
     Indication: COLITIS ULCERATIVE
     Route: 048
     Dates: start: 202006, end: 202010

REACTIONS (23)
  - Night sweats [Not Recovered/Not Resolved]
  - Frequent bowel movements [Not Recovered/Not Resolved]
  - Nasal congestion [Not Recovered/Not Resolved]
  - Anxiety [Recovering/Resolving]
  - Inflammation [Unknown]
  - Abdominal pain [Recovering/Resolving]
  - Oral candidiasis [Recovered/Resolved]
  - Seasonal allergy [Unknown]
  - Candida infection [Recovered/Resolved]
  - Nausea [Recovering/Resolving]
  - Rectal haemorrhage [Recovering/Resolving]
  - Therapeutic response shortened [Not Recovered/Not Resolved]
  - Colitis ulcerative [Not Recovered/Not Resolved]
  - Hospitalisation [Unknown]
  - Weight increased [Not Recovered/Not Resolved]
  - Diarrhoea haemorrhagic [Recovering/Resolving]
  - Loss of personal independence in daily activities [Unknown]
  - Malaise [Unknown]
  - Depressed mood [Not Recovered/Not Resolved]
  - Insomnia [Recovered/Resolved]
  - Abdominal pain lower [Unknown]
  - Peripheral swelling [Not Recovered/Not Resolved]
  - Abdominal adhesions [Unknown]

NARRATIVE: CASE EVENT DATE: 2020
